FAERS Safety Report 5027858-X (Version None)
Quarter: 2006Q2

REPORT INFORMATION
  Report Type: 
  Country: None (occurrence: None)
  Receive Date: 20060616
  Receipt Date: 20060317
  Transmission Date: 20061013
  Serious: Yes (Hospitalization)
  Sender: FDA-Public Use
  Company Number: JP-ROCHE-441380

PATIENT
  Age: 66 Year
  Sex: Female
  Weight: 63 kg

DRUGS (4)
  1. PEGASYS [Suspect]
     Route: 058
     Dates: start: 20050914, end: 20051109
  2. PEGASYS [Suspect]
     Route: 058
     Dates: start: 20051116, end: 20051228
  3. PEGASYS [Suspect]
     Route: 058
     Dates: start: 20060104, end: 20060308
  4. NORVASC [Concomitant]
     Route: 048
     Dates: start: 19960615

REACTIONS (2)
  - RETINOPATHY [None]
  - STEVENS-JOHNSON SYNDROME [None]
